FAERS Safety Report 4606251-5 (Version None)
Quarter: 2005Q1

REPORT INFORMATION
  Report Type: 
  Country: None (occurrence: None)
  Receive Date: 20050311
  Receipt Date: 20050209
  Transmission Date: 20050727
  Serious: Yes (Other)
  Sender: FDA-Public Use
  Company Number: CA-ABBOTT-05P-028-0290115-00

PATIENT
  Sex: Female
  Weight: 73 kg

DRUGS (16)
  1. HUMIRA [Suspect]
     Indication: CROHN'S DISEASE
     Route: 058
     Dates: start: 20041203, end: 20050124
  2. AZATHIOPRINE [Concomitant]
     Indication: CROHN'S DISEASE
     Dates: start: 20020524, end: 20041015
  3. AZATHIOPRINE [Concomitant]
     Dates: start: 20041016, end: 20041117
  4. CIPROFLOXACIN [Concomitant]
     Indication: CROHN'S DISEASE
     Dates: start: 19930101
  5. CALCITONIN-SALMON [Concomitant]
     Indication: BONE FORMATION DECREASED
     Dates: start: 19970101
  6. OESTRANORM [Concomitant]
     Indication: HORMONE REPLACEMENT THERAPY
     Dosage: 140/50 DAILY FOR 14 DAYS
     Route: 061
     Dates: start: 20030901
  7. ESTRADOT [Concomitant]
     Indication: HORMONE REPLACEMENT THERAPY
     Dosage: 50 DAILY FOR 14 DAYS
     Route: 061
     Dates: start: 20030901
  8. ACETAMINOPHEN W/ CODEINE [Concomitant]
     Indication: DIARRHOEA
     Dates: start: 19830101
  9. ACETAMINOPHEN W/ CODEINE [Concomitant]
     Indication: ABDOMINAL PAIN
  10. CYANOCOBALAMIN [Concomitant]
     Indication: VITAMIN B12 DEFICIENCY
     Dates: start: 19890101, end: 20031021
  11. CYANOCOBALAMIN [Concomitant]
     Dates: start: 20031126
  12. MULTI-VITAMINS [Concomitant]
     Indication: VITAMIN SUPPLEMENTATION
     Dates: start: 20030901
  13. LORAZEPAM [Concomitant]
     Indication: INSOMNIA
     Dates: start: 20021101
  14. CLOTRIMAZOLE [Concomitant]
     Indication: FUNGAL INFECTION
     Dosage: 0.1%
     Dates: start: 20031001
  15. TERBINAFINE HCL [Concomitant]
     Indication: ONYCHOMYCOSIS
     Dates: start: 20031130
  16. CHLORHEXIDINE HYDROCHLORIDE [Concomitant]
     Indication: NASOPHARYNGITIS
     Dates: start: 20031126

REACTIONS (1)
  - MYELODYSPLASTIC SYNDROME [None]
